FAERS Safety Report 11052302 (Version 1)
Quarter: 2015Q2

REPORT INFORMATION
  Report Type: Spontaneous
  Country: US (occurrence: None)
  Receive Date: 20150420
  Receipt Date: 20150420
  Transmission Date: 20150821
  Serious: Yes (Other)
  Sender: FDA-Public Use
  Company Number: None

PATIENT
  Age: 57 Year
  Sex: Male
  Weight: 47.3 kg

DRUGS (1)
  1. FINGOLIMOD [Suspect]
     Active Substance: FINGOLIMOD
     Indication: MULTIPLE SCLEROSIS
     Route: 048
     Dates: start: 20141023

REACTIONS (3)
  - Lymphopenia [None]
  - Conjunctival neoplasm [None]
  - Squamous cell carcinoma of skin [None]

NARRATIVE: CASE EVENT DATE: 20141110
